FAERS Safety Report 4321870-1 (Version None)
Quarter: 2004Q1

REPORT INFORMATION
  Report Type: 
  Country: None (occurrence: None)
  Receive Date: 20040322
  Receipt Date: 20040122
  Transmission Date: 20041129
  Serious: No
  Sender: FDA-Public Use
  Company Number: A-US2003-02795

PATIENT
  Age: 67 Year
  Sex: Male

DRUGS (15)
  1. TRACLEER [Suspect]
     Indication: PULMONARY HYPERTENSION
     Dosage: 62.5 MG, BID, ORAL; 125 MG, BID, ORAL
     Route: 048
     Dates: start: 20030415, end: 20030514
  2. TRACLEER [Suspect]
     Indication: PULMONARY HYPERTENSION
     Dosage: 62.5 MG, BID, ORAL; 125 MG, BID, ORAL
     Route: 048
     Dates: start: 20030515
  3. CANDESARTAN (CANDESARTAN) [Concomitant]
  4. LANTUS [Concomitant]
  5. HUMALOG [Concomitant]
  6. ATENOLOL [Concomitant]
  7. SIMVASTATIN [Concomitant]
  8. COLCHICINE (COLCHICINE) [Concomitant]
  9. FUROSEMIDE [Concomitant]
  10. ISOSORBIDE DINITRATE [Concomitant]
  11. OCUVITE (ASCORBIC ACID, RETINOL, TOCOPHEROL) [Concomitant]
  12. VITAMIN C (ASCORBIC ACID) [Concomitant]
  13. VITAMIN E [Concomitant]
  14. IRON (IRON) [Concomitant]
  15. ASPIRIN [Concomitant]

REACTIONS (3)
  - OEDEMA PERIPHERAL [None]
  - WEIGHT INCREASED [None]
  - WHITE BLOOD CELL COUNT DECREASED [None]
